FAERS Safety Report 25226175 (Version 2)
Quarter: 2025Q3

REPORT INFORMATION
  Report Type: Report from Study
  Country: CA (occurrence: CA)
  Receive Date: 20250422
  Receipt Date: 20250919
  Transmission Date: 20251021
  Serious: Yes (Other)
  Sender: TAKEDA
  Company Number: CA-TAKEDA-2022TUS076758

PATIENT
  Sex: Female
  Weight: 74 kg

DRUGS (7)
  1. VEDOLIZUMAB [Suspect]
     Active Substance: VEDOLIZUMAB
     Indication: Crohn^s disease
     Dates: start: 20171026, end: 20190425
  2. VEDOLIZUMAB [Suspect]
     Active Substance: VEDOLIZUMAB
  3. VEDOLIZUMAB [Suspect]
     Active Substance: VEDOLIZUMAB
     Indication: Crohn^s disease
     Dosage: 108 MILLIGRAM, Q2WEEKS
     Dates: start: 20230512
  4. PREDNISONE [Concomitant]
     Active Substance: PREDNISONE
  5. CALCIUM [Concomitant]
     Active Substance: CALCIUM
  6. COLESEVELAM HYDROCHLORIDE [Concomitant]
     Active Substance: COLESEVELAM HYDROCHLORIDE
  7. BUTYLSCOPOLAMINE BROMIDE [Concomitant]
     Active Substance: BUTYLSCOPOLAMINE BROMIDE

REACTIONS (32)
  - Crohn^s disease [Unknown]
  - Abdominal tenderness [Not Recovered/Not Resolved]
  - Mouth ulceration [Not Recovered/Not Resolved]
  - Abdominal pain [Not Recovered/Not Resolved]
  - Malaise [Not Recovered/Not Resolved]
  - Anal fissure [Not Recovered/Not Resolved]
  - Skin discolouration [Unknown]
  - Diarrhoea [Unknown]
  - Anosmia [Unknown]
  - Myalgia [Unknown]
  - Ageusia [Unknown]
  - Abdominal mass [Unknown]
  - Eye disorder [Unknown]
  - Livedo reticularis [Unknown]
  - Irritable bowel syndrome [Unknown]
  - Abnormal faeces [Unknown]
  - Arthritis [Unknown]
  - Decreased immune responsiveness [Unknown]
  - Hypovitaminosis [Unknown]
  - Product dose omission issue [Unknown]
  - Social problem [Unknown]
  - Impaired work ability [Unknown]
  - Dyspnoea [Unknown]
  - Feeling cold [Unknown]
  - Chills [Unknown]
  - Constipation [Unknown]
  - Headache [Unknown]
  - Arthralgia [Unknown]
  - Oropharyngeal pain [Unknown]
  - Cough [Unknown]
  - Fatigue [Unknown]
  - Pyrexia [Unknown]
